FAERS Safety Report 22764476 (Version 4)
Quarter: 2023Q4

REPORT INFORMATION
  Report Type: Spontaneous
  Country: US (occurrence: US)
  Receive Date: 20230731
  Receipt Date: 20231204
  Transmission Date: 20240109
  Serious: Yes (Other)
  Sender: FDA-Public Use
  Company Number: US-SA-SAC20230727000585

PATIENT
  Age: 61 Year
  Sex: Female

DRUGS (2)
  1. DUPIXENT [Suspect]
     Active Substance: DUPILUMAB
     Indication: Dermatitis atopic
     Dosage: 300 MG, QOW
     Route: 058
  2. ENTYVIO [Concomitant]
     Active Substance: VEDOLIZUMAB
     Dosage: UNK

REACTIONS (10)
  - Crohn^s disease [Unknown]
  - Dehydration [Unknown]
  - Diarrhoea [Unknown]
  - Skin haemorrhage [Unknown]
  - Dry skin [Unknown]
  - Injection site bruising [Unknown]
  - Injection site pain [Unknown]
  - Product preparation error [Unknown]
  - Intentional product misuse [Unknown]
  - Product dose omission in error [Unknown]

NARRATIVE: CASE EVENT DATE: 20231001
